FAERS Safety Report 9809155 (Version 2)
Quarter: 2014Q1

REPORT INFORMATION
  Report Type: Report from Study
  Country: US (occurrence: US)
  Receive Date: 20140110
  Receipt Date: 20140303
  Transmission Date: 20141002
  Serious: Yes (Hospitalization)
  Sender: FDA-Public Use
  Company Number: PHEH2014US000733

PATIENT
  Age: 50 Year
  Sex: Female

DRUGS (1)
  1. GILENYA [Suspect]
     Indication: MULTIPLE SCLEROSIS
     Dosage: 0.5 MG, QD
     Route: 048
     Dates: start: 20130822, end: 20131225

REACTIONS (5)
  - Cerebrovascular accident [Unknown]
  - Hypoaesthesia [Unknown]
  - Dysarthria [Unknown]
  - Drooling [Unknown]
  - Balance disorder [Unknown]
